FAERS Safety Report 8367186-8 (Version None)
Quarter: 2012Q2

REPORT INFORMATION
  Report Type: 
  Country: None (occurrence: None)
  Receive Date: 20120517
  Receipt Date: 20120509
  Transmission Date: 20120825
  Serious: Yes (Hospitalization)
  Sender: FDA-Public Use
  Company Number: FR-ASTRAZENECA-2012SE22395

PATIENT
  Age: 12664 Day
  Sex: Female

DRUGS (15)
  1. QUETIAPINE FUMARATE [Interacting]
     Route: 048
     Dates: start: 20120112
  2. LEVOTHYROXINE SODIUM [Concomitant]
     Indication: THYROID DISORDER
     Route: 048
  3. VALIUM [Concomitant]
     Route: 048
  4. GLUCOPHAGE [Concomitant]
     Indication: HYPERGLYCAEMIA
     Route: 048
  5. TEMESTA [Concomitant]
     Route: 048
  6. PRAMIPEXOLE DIHYDROCHLORIDE [Concomitant]
     Route: 048
     Dates: start: 20120101
  7. QUETIAPINE FUMARATE [Interacting]
     Route: 048
     Dates: start: 20120104, end: 20120111
  8. QUETIAPINE FUMARATE [Suspect]
     Indication: BIPOLAR DISORDER
     Route: 048
     Dates: start: 20111031, end: 20120103
  9. MIRTAZAPINE [Concomitant]
     Route: 048
  10. MIRTAZAPINE [Concomitant]
     Indication: DEPRESSION
     Route: 048
  11. LOXAPINE HCL [Interacting]
     Route: 048
     Dates: end: 20120227
  12. ZOLOFT [Interacting]
     Indication: DEPRESSION
     Route: 048
     Dates: start: 20120104
  13. ZOLOFT [Interacting]
     Route: 048
     Dates: end: 20120227
  14. LOXAPINE HCL [Interacting]
     Indication: PSYCHOTIC DISORDER
     Route: 048
  15. LITHIUM CARBONATE [Concomitant]
     Route: 048

REACTIONS (3)
  - SUICIDAL IDEATION [None]
  - URINARY RETENTION [None]
  - DRUG INTERACTION [None]
